FAERS Safety Report 8928203 (Version 2)
Quarter: 2013Q1

REPORT INFORMATION
  Report Type: Spontaneous
  Country: US (occurrence: US)
  Receive Date: 20121128
  Receipt Date: 20130101
  Transmission Date: 20140127
  Serious: No
  Sender: FDA-Public Use
  Company Number: US-BIOGENIDEC-2012BI054019

PATIENT
  Age: 47 Year
  Sex: Female

DRUGS (3)
  1. TYSABRI [Suspect]
     Indication: MULTIPLE SCLEROSIS
     Route: 042
     Dates: start: 20120821
  2. ORPHENADRINE [Concomitant]
     Indication: MUSCLE SPASMS
  3. BENADRYL [Concomitant]
     Indication: PREMEDICATION

REACTIONS (21)
  - Aspartate aminotransferase increased [Recovered/Resolved]
  - CD4 lymphocytes decreased [Recovered/Resolved]
  - Rheumatoid arthritis [Unknown]
  - Phlebitis [Unknown]
  - White blood cell count decreased [Recovered/Resolved]
  - Hepatic enzyme increased [Unknown]
  - Infusion site pain [Not Recovered/Not Resolved]
  - Infusion site swelling [Not Recovered/Not Resolved]
  - Back pain [Not Recovered/Not Resolved]
  - Pain in extremity [Not Recovered/Not Resolved]
  - Erythema [Not Recovered/Not Resolved]
  - Pain [Not Recovered/Not Resolved]
  - Pain in jaw [Recovered/Resolved]
  - Contusion [Not Recovered/Not Resolved]
  - Vein disorder [Not Recovered/Not Resolved]
  - Headache [Not Recovered/Not Resolved]
  - Nausea [Not Recovered/Not Resolved]
  - Malaise [Not Recovered/Not Resolved]
  - Dizziness [Not Recovered/Not Resolved]
  - Fatigue [Not Recovered/Not Resolved]
  - Infusion site erythema [Not Recovered/Not Resolved]
